FAERS Safety Report 26172980 (Version 1)
Quarter: 2025Q4

REPORT INFORMATION
  Report Type: Spontaneous
  Country: US (occurrence: US)
  Receive Date: 20251218
  Receipt Date: 20251218
  Transmission Date: 20260118
  Serious: Yes (Other)
  Sender: SAMSUNG BIOEPIS
  Company Number: US-SAMSUNG BIOEPIS-SB-2025-41376

PATIENT
  Age: 14 Year
  Sex: Female

DRUGS (2)
  1. INFLIXIMAB [Suspect]
     Active Substance: INFLIXIMAB
     Indication: Crohn^s disease
  2. IRON SUCROSE [Concomitant]
     Active Substance: IRON SUCROSE
     Indication: Iron deficiency anaemia
     Route: 042

REACTIONS (1)
  - Crohn^s disease [Unknown]
